FAERS Safety Report 5305439-8 (Version None)
Quarter: 2007Q2

REPORT INFORMATION
  Report Type: 
  Country: None (occurrence: None)
  Receive Date: 20070416
  Receipt Date: 20070403
  Transmission Date: 20071010
  Serious: Yes (Hospitalization)
  Sender: FDA-Public Use
  Company Number: 2007314216

PATIENT
  Age: 3 Year
  Sex: Male
  Weight: 14.1 kg

DRUGS (4)
  1. BENADRYL [Suspect]
     Indication: NASOPHARYNGITIS
     Dosage: 3/4 OF A TEASPOON AS NEEDED ONCE MONTHLY, ORAL
     Route: 048
     Dates: start: 20070308, end: 20070331
  2. AZITHROMYCIN [Concomitant]
  3. XOPENEX [Concomitant]
  4. PULMICORT [Concomitant]

REACTIONS (1)
  - PHARMACEUTICAL PRODUCT COMPLAINT [None]
